FAERS Safety Report 14110581 (Version 1)
Quarter: 2017Q4

REPORT INFORMATION
  Report Type: Spontaneous
  Country: FR (occurrence: FR)
  Receive Date: 20171020
  Receipt Date: 20171020
  Transmission Date: 20180321
  Serious: Yes (Hospitalization)
  Sender: FDA-Public Use
  Company Number: FR-NAPPMUNDI-GBR-2017-0049914

PATIENT

DRUGS (13)
  1. OXYNORM [Suspect]
     Active Substance: OXYCODONE HYDROCHLORIDE
     Dosage: 20MG MORNING, 20MG NOON, 10MG EVENING
     Route: 048
     Dates: start: 20170303
  2. OXYNORM [Suspect]
     Active Substance: OXYCODONE HYDROCHLORIDE
     Dosage: 20MG MORNING, 10MG NOON, 10MG EVENING
     Route: 048
     Dates: start: 20170223
  3. LYRICA [Concomitant]
     Active Substance: PREGABALIN
     Dosage: 150 MG (MORNING AND EVENING), BID
     Dates: start: 20170303
  4. OXYNORM [Suspect]
     Active Substance: OXYCODONE HYDROCHLORIDE
     Dosage: 10 MG, DAILY
     Route: 048
     Dates: start: 201509
  5. MIANSERINE [Concomitant]
     Active Substance: MIANSERIN HYDROCHLORIDE
     Dosage: 10 MG, UNK
     Dates: start: 20170223
  6. LYRICA [Concomitant]
     Active Substance: PREGABALIN
     Dosage: 300 MG, BID
     Dates: start: 201706
  7. LYRICA [Concomitant]
     Active Substance: PREGABALIN
     Dosage: UNK
     Dates: start: 2016
  8. CANNABIS [Suspect]
     Active Substance: CANNABIS SATIVA SUBSP. INDICA TOP
     Indication: PRODUCT USED FOR UNKNOWN INDICATION
     Dosage: ONE JOINT DURING THE WEEK-END ONE OR TWO TIMES A MONTH WITH FRIENDS
     Route: 055
  9. LYRICA [Concomitant]
     Active Substance: PREGABALIN
     Dosage: 150 MG (1 MORNING 1 EVENING), BID
     Dates: start: 20170223
  10. MIANSERINE [Concomitant]
     Active Substance: MIANSERIN HYDROCHLORIDE
     Dosage: 20 MG, DAILY
  11. OXYNORM [Suspect]
     Active Substance: OXYCODONE HYDROCHLORIDE
     Indication: PRODUCT USED FOR UNKNOWN INDICATION
     Dosage: 40 MG, DAILY, SPREADED IN 4 INTAKES
     Route: 048
     Dates: start: 20170329
  12. OXYCODONE HYDROCHLORIDE. [Concomitant]
     Active Substance: OXYCODONE HYDROCHLORIDE
     Dosage: 10MG (2-0-2)
  13. MIANSERINE [Concomitant]
     Active Substance: MIANSERIN HYDROCHLORIDE
     Dosage: 1 DF, DAILY (EVENING)
     Dates: start: 20170303

REACTIONS (12)
  - Drug abuse [Recovering/Resolving]
  - Nausea [Recovering/Resolving]
  - Muscle tightness [Recovering/Resolving]
  - Drug abuse [Not Recovered/Not Resolved]
  - Chills [Recovering/Resolving]
  - Drug withdrawal syndrome [Recovering/Resolving]
  - Intentional product misuse [Recovering/Resolving]
  - Drug dependence [Recovering/Resolving]
  - Asthenia [Recovering/Resolving]
  - Rhinorrhoea [Recovering/Resolving]
  - Abdominal pain [Recovering/Resolving]
  - Off label use [Unknown]

NARRATIVE: CASE EVENT DATE: 201509
